FAERS Safety Report 13517625 (Version 2)
Quarter: 2017Q3

REPORT INFORMATION
  Report Type: Spontaneous
  Country: US (occurrence: US)
  Receive Date: 20170505
  Receipt Date: 20170707
  Transmission Date: 20171127
  Serious: Yes (Hospitalization, Other)
  Sender: FDA-Public Use
  Company Number: US-PFIZER INC-2017194142

PATIENT
  Age: 69 Year
  Sex: Female
  Weight: 87 kg

DRUGS (2)
  1. LYRICA [Suspect]
     Active Substance: PREGABALIN
     Indication: NERVE INJURY
  2. LYRICA [Suspect]
     Active Substance: PREGABALIN
     Indication: SCIATICA
     Dosage: 150 MG, 2X/DAY, AS NEEDED
     Route: 048

REACTIONS (14)
  - Wheezing [Unknown]
  - Staphylococcal infection [Unknown]
  - Product use issue [Unknown]
  - Palpitations [Unknown]
  - Memory impairment [Unknown]
  - Loss of consciousness [Unknown]
  - Confusional state [Unknown]
  - Swelling [Unknown]
  - Gait inability [Unknown]
  - Impaired work ability [Unknown]
  - Body height decreased [Unknown]
  - Weight increased [Unknown]
  - Dysgraphia [Unknown]
  - Visual impairment [Unknown]

NARRATIVE: CASE EVENT DATE: 2015
